FAERS Safety Report 4546694-1 (Version None)
Quarter: 2005Q1

REPORT INFORMATION
  Report Type: 
  Country: None (occurrence: None)
  Receive Date: 20050105
  Receipt Date: 20050103
  Transmission Date: 20050727
  Serious: Yes (Death, Other)
  Sender: FDA-Public Use
  Company Number: 05-01-0002

PATIENT
  Age: 72 Year
  Sex: Female

DRUGS (1)
  1. CLOZAPINE [Suspect]
     Indication: SCHIZOPHRENIA
     Dosage: 300-700MG QD ORAL
     Route: 048
     Dates: start: 19990301, end: 20041201

REACTIONS (2)
  - INTESTINAL ISCHAEMIA [None]
  - PNEUMONIA [None]
